FAERS Safety Report 8150916 (Version 10)
Quarter: 2013Q3

REPORT INFORMATION
  Report Type: Spontaneous
  Country: US (occurrence: US)
  Receive Date: 20110922
  Receipt Date: 20130903
  Transmission Date: 20140515
  Serious: Yes (Life-Threatening, Hospitalization)
  Sender: FDA-Public Use
  Company Number: US-ASTRAZENECA-2009UW02185

PATIENT
  Age: 57 Year
  Sex: Female
  Weight: 70.3 kg

DRUGS (48)
  1. SEROQUEL [Suspect]
     Indication: POST-TRAUMATIC STRESS DISORDER
     Route: 048
     Dates: start: 200908
  2. SEROQUEL [Suspect]
     Indication: SCHIZOPHRENIA
     Route: 048
     Dates: start: 200908
  3. SEROQUEL [Suspect]
     Indication: SLEEP DISORDER
     Route: 048
     Dates: start: 200908
  4. SEROQUEL [Suspect]
     Indication: SLEEP DISORDER THERAPY
     Route: 048
  5. SEROQUEL [Suspect]
     Indication: POST-TRAUMATIC STRESS DISORDER
     Route: 048
  6. SEROQUEL [Suspect]
     Indication: SCHIZOPHRENIA
     Route: 048
  7. SEROQUEL [Suspect]
     Indication: SLEEP DISORDER
     Route: 048
  8. SEROQUEL [Suspect]
     Indication: SLEEP DISORDER THERAPY
     Route: 048
  9. SEROQUEL [Suspect]
     Indication: POST-TRAUMATIC STRESS DISORDER
     Route: 048
  10. SEROQUEL [Suspect]
     Indication: SCHIZOPHRENIA
     Route: 048
  11. SEROQUEL [Suspect]
     Indication: SLEEP DISORDER
     Route: 048
  12. SEROQUEL [Suspect]
     Indication: SLEEP DISORDER THERAPY
     Route: 048
  13. SEROQUEL [Suspect]
     Indication: POST-TRAUMATIC STRESS DISORDER
     Route: 048
  14. SEROQUEL [Suspect]
     Indication: SCHIZOPHRENIA
     Route: 048
  15. SEROQUEL [Suspect]
     Indication: SLEEP DISORDER
     Route: 048
  16. SEROQUEL [Suspect]
     Indication: SLEEP DISORDER THERAPY
     Route: 048
  17. SEROQUEL [Suspect]
     Indication: POST-TRAUMATIC STRESS DISORDER
     Route: 048
  18. SEROQUEL [Suspect]
     Indication: SCHIZOPHRENIA
     Route: 048
  19. SEROQUEL [Suspect]
     Indication: SLEEP DISORDER
     Route: 048
  20. XANAX [Concomitant]
     Indication: PANIC DISORDER
  21. TEGRETOL [Concomitant]
     Indication: CONVULSION
  22. TEGRETOL [Concomitant]
     Indication: GRAND MAL CONVULSION
  23. PROZAC [Concomitant]
  24. SEROQUEL [Suspect]
     Indication: SLEEP DISORDER THERAPY
     Route: 048
     Dates: start: 2006
  25. SEROQUEL [Suspect]
     Indication: POST-TRAUMATIC STRESS DISORDER
     Route: 048
     Dates: start: 2006
  26. SEROQUEL [Suspect]
     Indication: SCHIZOPHRENIA
     Route: 048
     Dates: start: 2006
  27. SEROQUEL [Suspect]
     Indication: SLEEP DISORDER
     Route: 048
     Dates: start: 2006
  28. SEROQUEL [Suspect]
     Indication: SLEEP DISORDER THERAPY
     Route: 048
     Dates: start: 20060801, end: 20080801
  29. SEROQUEL [Suspect]
     Indication: POST-TRAUMATIC STRESS DISORDER
     Route: 048
     Dates: start: 20060801, end: 20080801
  30. SEROQUEL [Suspect]
     Indication: SCHIZOPHRENIA
     Route: 048
     Dates: start: 20060801, end: 20080801
  31. SEROQUEL [Suspect]
     Indication: SLEEP DISORDER
     Route: 048
     Dates: start: 20060801, end: 20080801
  32. SEROQUEL [Suspect]
     Indication: SLEEP DISORDER THERAPY
     Route: 048
     Dates: start: 2007
  33. SEROQUEL [Suspect]
     Indication: POST-TRAUMATIC STRESS DISORDER
     Route: 048
     Dates: start: 2007
  34. SEROQUEL [Suspect]
     Indication: SCHIZOPHRENIA
     Route: 048
     Dates: start: 2007
  35. SEROQUEL [Suspect]
     Indication: SLEEP DISORDER
     Route: 048
     Dates: start: 2007
  36. SEROQUEL [Suspect]
     Indication: SLEEP DISORDER THERAPY
     Route: 048
     Dates: start: 20080801, end: 20090118
  37. SEROQUEL [Suspect]
     Indication: POST-TRAUMATIC STRESS DISORDER
     Route: 048
     Dates: start: 20080801, end: 20090118
  38. SEROQUEL [Suspect]
     Indication: SCHIZOPHRENIA
     Route: 048
     Dates: start: 20080801, end: 20090118
  39. SEROQUEL [Suspect]
     Indication: SLEEP DISORDER
     Route: 048
     Dates: start: 20080801, end: 20090118
  40. SEROQUEL [Suspect]
     Indication: SLEEP DISORDER THERAPY
     Route: 048
     Dates: start: 2006, end: 200908
  41. SEROQUEL [Suspect]
     Indication: POST-TRAUMATIC STRESS DISORDER
     Route: 048
     Dates: start: 2006, end: 200908
  42. SEROQUEL [Suspect]
     Indication: SCHIZOPHRENIA
     Route: 048
     Dates: start: 2006, end: 200908
  43. SEROQUEL [Suspect]
     Indication: SLEEP DISORDER
     Route: 048
     Dates: start: 2006, end: 200908
  44. SEROQUEL [Suspect]
     Indication: SLEEP DISORDER THERAPY
     Route: 048
     Dates: start: 200908, end: 200908
  45. SEROQUEL [Suspect]
     Indication: POST-TRAUMATIC STRESS DISORDER
     Route: 048
     Dates: start: 200908, end: 200908
  46. SEROQUEL [Suspect]
     Indication: SCHIZOPHRENIA
     Route: 048
     Dates: start: 200908, end: 200908
  47. SEROQUEL [Suspect]
     Indication: SLEEP DISORDER
     Route: 048
     Dates: start: 200908, end: 200908
  48. SEROQUEL [Suspect]
     Indication: SLEEP DISORDER THERAPY
     Route: 048
     Dates: start: 200908

REACTIONS (23)
  - Suicide attempt [Unknown]
  - Apparent death [Unknown]
  - Hallucination [Recovered/Resolved]
  - Psychotic disorder [Unknown]
  - Aphasia [Recovered/Resolved]
  - Faecal incontinence [Recovered/Resolved]
  - Urinary incontinence [Recovered/Resolved]
  - Apathy [Recovered/Resolved]
  - Catatonia [Recovered/Resolved]
  - Insomnia [Unknown]
  - Memory impairment [Unknown]
  - Sleep disorder [Unknown]
  - Abasia [Recovered/Resolved]
  - Withdrawal syndrome [Unknown]
  - Memory impairment [Unknown]
  - Malaise [Unknown]
  - Emotional disorder [Unknown]
  - Adverse event [Unknown]
  - Intentional drug misuse [Unknown]
  - Off label use [Unknown]
  - Wrong patient received medication [Unknown]
  - Intentional drug misuse [Unknown]
  - Drug ineffective [Unknown]
